FAERS Safety Report 12074539 (Version 2)
Quarter: 2016Q2

REPORT INFORMATION
  Report Type: Spontaneous
  Country: FR (occurrence: FR)
  Receive Date: 20160212
  Receipt Date: 20160609
  Transmission Date: 20160815
  Serious: Yes (Hospitalization)
  Sender: FDA-Public Use
  Company Number: PHHY2016FR018668

PATIENT
  Age: 48 Year
  Sex: Male

DRUGS (8)
  1. TEGRETOL LP [Suspect]
     Active Substance: CARBAMAZEPINE
     Indication: TRIGEMINAL NEURALGIA
     Dosage: 1 DF (200 MG), TID
     Route: 048
     Dates: start: 20151210
  2. INDOCID [Suspect]
     Active Substance: INDOMETHACIN
     Indication: PAIN
     Dosage: 1 DF, QID
     Route: 048
     Dates: start: 201512, end: 20160105
  3. DOLIPRANE [Suspect]
     Active Substance: ACETAMINOPHEN
     Indication: PAIN
     Dosage: 1 DF, TID
     Route: 048
     Dates: start: 201512, end: 20160105
  4. OMEPRAZOLE. [Suspect]
     Active Substance: OMEPRAZOLE
     Indication: PRODUCT USED FOR UNKNOWN INDICATION
     Dosage: 1 DF, QD (IN THE MORNING)
     Route: 048
     Dates: start: 201512, end: 20160101
  5. TEGRETOL LP [Suspect]
     Active Substance: CARBAMAZEPINE
     Dosage: 1 DF (400 MG), TID
     Route: 048
     Dates: end: 20160105
  6. BROMAZEPAM [Suspect]
     Active Substance: BROMAZEPAM
     Indication: ANXIETY
     Dosage: 1.5 MG (6 TIMES QD), PRN
     Route: 048
     Dates: start: 201512, end: 20160101
  7. LAROXYL [Suspect]
     Active Substance: AMITRIPTYLINE
     Indication: TRIGEMINAL NEURALGIA
     Dosage: 40 DRP, QD (IN THE EVENING)
     Route: 048
     Dates: start: 201512
  8. CHRONO-INDOCID [Suspect]
     Active Substance: INDOMETHACIN
     Indication: PAIN
     Dosage: 1 DF, QD (IN THE EVENING)
     Route: 048
     Dates: start: 201512, end: 20160105

REACTIONS (2)
  - Hepatocellular injury [Not Recovered/Not Resolved]
  - Cholestasis [Not Recovered/Not Resolved]

NARRATIVE: CASE EVENT DATE: 20151230
